FAERS Safety Report 6071432-3 (Version None)
Quarter: 2009Q1

REPORT INFORMATION
  Report Type: 
  Country: None (occurrence: None)
  Receive Date: 20090204
  Receipt Date: 20090120
  Transmission Date: 20090719
  Serious: Yes (Other)
  Sender: FDA-Public Use
  Company Number: 8041491

PATIENT
  Age: 38 Year
  Sex: Male
  Weight: 100 kg

DRUGS (11)
  1. CIMZIA [Suspect]
     Indication: CROHN'S DISEASE
     Dosage: 400 MG SC
     Route: 058
     Dates: start: 20080711
  2. VITAMIN B-12 [Concomitant]
  3. LAMICTAL [Concomitant]
  4. ELAVIL [Concomitant]
  5. NEXIUM [Concomitant]
  6. ZANTAC [Concomitant]
  7. ALEVE [Concomitant]
  8. PURONETHOL [Concomitant]
  9. ENTOCORT EC [Concomitant]
  10. PHENERGAN [Concomitant]
  11. MICRO-K [Concomitant]

REACTIONS (3)
  - CYST [None]
  - NASAL CONGESTION [None]
  - STAPHYLOCOCCAL INFECTION [None]
